FAERS Safety Report 9833339 (Version 1)
Quarter: 2014Q1

REPORT INFORMATION
  Report Type: Spontaneous
  Country: US (occurrence: US)
  Receive Date: 20140121
  Receipt Date: 20140121
  Transmission Date: 20141002
  Serious: Yes (Death)
  Sender: FDA-Public Use
  Company Number: US-ALLERGAN-1400819US

PATIENT
  Age: 69 Year
  Sex: Male
  Weight: 65.76 kg

DRUGS (35)
  1. BOTOX [Suspect]
     Indication: HEMIPLEGIA
     Dosage: 100 UNITS, SINGLE
     Route: 030
     Dates: start: 20130501, end: 20130501
  2. BOTOX [Suspect]
     Dosage: 100 UNITS, SINGLE
     Route: 030
     Dates: start: 20130501, end: 20130501
  3. BOTOX [Suspect]
     Dosage: 50 UNITS, SINGLE
     Route: 030
     Dates: start: 20130501, end: 20130501
  4. BOTOX [Suspect]
     Dosage: 100 UNK, UNK
     Dates: start: 20130501, end: 20130501
  5. BOTOX [Suspect]
     Dosage: 50 UNITS, SINGLE
     Route: 030
     Dates: start: 20130501, end: 20130501
  6. BOTOX [Suspect]
     Dosage: 50 UNITS, SINGLE
     Route: 030
     Dates: start: 20130501, end: 20130501
  7. BOTOX [Suspect]
     Dosage: 50 UNITS, SINGLE
     Route: 030
     Dates: start: 20130501, end: 20130501
  8. BOTOX [Suspect]
     Dosage: 100 UNITS, SINGLE
     Route: 030
     Dates: start: 20130108, end: 20130108
  9. BOTOX [Suspect]
     Dosage: 100 UNITS, SINGLE
     Route: 030
     Dates: start: 20130108, end: 20130108
  10. BOTOX [Suspect]
     Dosage: 50 UNITS, SINGLE
     Route: 030
     Dates: start: 20130108, end: 20130108
  11. BOTOX [Suspect]
     Dosage: 100 UNK, UNK
     Dates: start: 20130108, end: 20130108
  12. BOTOX [Suspect]
     Dosage: 50 UNITS, SINGLE
     Route: 030
     Dates: start: 20130108, end: 20130108
  13. BOTOX [Suspect]
     Dosage: 50 UNITS, SINGLE
     Route: 030
     Dates: start: 20130108, end: 20130108
  14. BOTOX [Suspect]
     Dosage: 50 UNITS, SINGLE
     Route: 030
     Dates: start: 20130108, end: 20130108
  15. BOTOX [Suspect]
     Dosage: 100 UNITS, SINGLE
     Route: 030
     Dates: start: 20121025, end: 20121025
  16. BOTOX [Suspect]
     Dosage: 100 UNITS, SINGLE
     Route: 030
     Dates: start: 20121025, end: 20121025
  17. BOTOX [Suspect]
     Dosage: 50 UNITS, SINGLE
     Route: 030
     Dates: start: 20121025, end: 20121025
  18. BOTOX [Suspect]
     Dosage: 100 UNK, UNK
     Dates: start: 20121025, end: 20121025
  19. BOTOX [Suspect]
     Dosage: 50 UNITS, SINGLE
     Route: 030
     Dates: start: 20121025, end: 20121025
  20. BOTOX [Suspect]
     Dosage: 50 UNITS, SINGLE
     Route: 030
     Dates: start: 20121025, end: 20121025
  21. BOTOX [Suspect]
     Dosage: 50 UNITS, SINGLE
     Route: 030
     Dates: start: 20121025, end: 20121025
  22. BOTOX [Suspect]
     Dosage: 100 UNITS, SINGLE
     Route: 030
     Dates: start: 20120612, end: 20120612
  23. BOTOX [Suspect]
     Dosage: 100 UNITS, SINGLE
     Route: 030
     Dates: start: 20120612, end: 20120612
  24. BOTOX [Suspect]
     Dosage: 50 UNITS, SINGLE
     Route: 030
     Dates: start: 20120612, end: 20120612
  25. BOTOX [Suspect]
     Dosage: 100 UNK, UNK
     Dates: start: 20120612, end: 20120612
  26. BOTOX [Suspect]
     Dosage: 50 UNITS, SINGLE
     Route: 030
     Dates: start: 20120612, end: 20120612
  27. BOTOX [Suspect]
     Dosage: 50 UNITS, SINGLE
     Route: 030
     Dates: start: 20120612, end: 20120612
  28. BOTOX [Suspect]
     Dosage: 100 UNK, UNK
     Dates: start: 20120312, end: 20120312
  29. BOTOX [Suspect]
     Dosage: 50 UNITS, SINGLE
     Route: 030
     Dates: start: 20120612, end: 20120612
  30. BOTOX [Suspect]
     Dosage: 100 UNITS, SINGLE
     Route: 030
     Dates: start: 20120312, end: 20120312
  31. BOTOX [Suspect]
     Dosage: 100 UNITS, SINGLE
     Route: 030
     Dates: start: 20120312, end: 20120312
  32. BOTOX [Suspect]
     Dosage: 50 UNITS, SINGLE
     Route: 030
     Dates: start: 20120312, end: 20120312
  33. BOTOX [Suspect]
     Dosage: 50 UNITS, SINGLE
     Route: 030
     Dates: start: 20120312, end: 20120312
  34. BOTOX [Suspect]
     Dosage: 50 UNITS, SINGLE
     Route: 030
     Dates: start: 20120312, end: 20120312
  35. BOTOX [Suspect]
     Dosage: 50 UNITS, SINGLE
     Route: 030
     Dates: start: 20120312, end: 20120312

REACTIONS (2)
  - Death [Fatal]
  - Overdose [Unknown]
